FAERS Safety Report 15185554 (Version 2)
Quarter: 2018Q3

REPORT INFORMATION
  Report Type: Report from Study
  Country: US (occurrence: US)
  Receive Date: 20180723
  Receipt Date: 20180810
  Transmission Date: 20181010
  Serious: Yes (Hospitalization)
  Sender: FDA-Public Use
  Company Number: US-SHIRE-US201826505

PATIENT
  Sex: Female
  Weight: 41 kg

DRUGS (1)
  1. GATTEX [Suspect]
     Active Substance: TEDUGLUTIDE\WATER
     Indication: SHORT-BOWEL SYNDROME
     Dosage: 0.205 ML, 1X/DAY:QD
     Route: 050

REACTIONS (2)
  - Weight decreased [Recovering/Resolving]
  - Malaise [Unknown]
